FAERS Safety Report 8528119 (Version 11)
Quarter: 2014Q1

REPORT INFORMATION
  Report Type: Spontaneous
  Country: US (occurrence: US)
  Receive Date: 20120424
  Receipt Date: 20140207
  Transmission Date: 20141002
  Serious: Yes (Other)
  Sender: FDA-Public Use
  Company Number: US-NAPPMUNDI-USA-2009-0038416

PATIENT
  Age: 33 Year
  Sex: Male

DRUGS (6)
  1. OXYCONTIN (NDA 22-272) [Suspect]
     Indication: PAIN
     Dosage: UNK MG, UNK
     Dates: start: 1999
  2. OXYCONTIN (NDA 22-272) [Suspect]
     Dosage: 100 MG, SEE TEXT
     Route: 048
  3. OXYCONTIN (NDA 22-272) [Suspect]
     Dosage: 1600 MILLIGRAMS ON DAILY BASIS
  4. HEROIN [Suspect]
     Indication: DRUG ABUSE
  5. METHAMPHETAMINE [Suspect]
     Indication: DRUG ABUSE
  6. COCAINE [Suspect]
     Indication: DRUG ABUSE
     Dosage: UNK UNK, SEE TEXT

REACTIONS (8)
  - Overdose [Recovered/Resolved]
  - Polysubstance dependence [Recovered/Resolved]
  - Substance abuse [Recovered/Resolved]
  - Suicide attempt [Recovered/Resolved]
  - Injury [Unknown]
  - Memory impairment [Unknown]
  - Drug withdrawal syndrome [Recovered/Resolved]
  - Euphoric mood [Recovered/Resolved]
